FAERS Safety Report 10598171 (Version 2)
Quarter: 2014Q4

REPORT INFORMATION
  Report Type: Spontaneous
  Country: BR (occurrence: BR)
  Receive Date: 20141121
  Receipt Date: 20141203
  Transmission Date: 20150529
  Serious: Yes (Hospitalization, Other)
  Sender: FDA-Public Use
  Company Number: BR-PFIZER INC-2014317885

PATIENT
  Age: 83 Year
  Sex: Female

DRUGS (5)
  1. BETOPTIC [Concomitant]
     Active Substance: BETAXOLOL HYDROCHLORIDE
     Dosage: 1 DROP IN THE RIGHT EYE, 12/12 HRS
     Route: 047
  2. PRESMIN [Concomitant]
     Dosage: 1 DROP IN THE RIGHT EYE, 12/12 HRS
  3. XALATAN [Suspect]
     Active Substance: LATANOPROST
     Indication: GLAUCOMA
     Dosage: ONE DROP IN EACH EYE, DAILY
     Route: 047
     Dates: start: 2004
  4. OCUPRESS [Concomitant]
     Active Substance: CARTEOLOL HYDROCHLORIDE
     Dosage: 1 DROP, 12/12 HRS
  5. XALATAN [Suspect]
     Active Substance: LATANOPROST
     Dosage: ONE DROP IN THE RIGHT EYE, DAILY
     Route: 047

REACTIONS (6)
  - Cataract [Unknown]
  - Visual acuity reduced [Not Recovered/Not Resolved]
  - Pruritus [Unknown]
  - Retinal vascular disorder [Not Recovered/Not Resolved]
  - Glaucoma [Unknown]
  - Blindness unilateral [Not Recovered/Not Resolved]

NARRATIVE: CASE EVENT DATE: 2006
